FAERS Safety Report 7123787-6 (Version None)
Quarter: 2010Q4

REPORT INFORMATION
  Report Type: 
  Country: None (occurrence: None)
  Receive Date: 20101125
  Receipt Date: 20101116
  Transmission Date: 20110411
  Serious: Yes (Death)
  Sender: FDA-Public Use
  Company Number: PHEH2009US05985

PATIENT
  Sex: Male
  Weight: 73.469 kg

DRUGS (2)
  1. EXJADE [Suspect]
     Indication: RENAL FAILURE
     Dosage: 1500 MG, QD
     Route: 048
     Dates: start: 20090529, end: 20090603
  2. EPOGEN [Concomitant]
     Indication: ANAEMIA
     Dosage: 40 K WEEKLY
     Route: 058
     Dates: start: 20050718

REACTIONS (4)
  - DEATH [None]
  - DIARRHOEA [None]
  - NAUSEA [None]
  - VERTIGO [None]
